FAERS Safety Report 5670469-3 (Version None)
Quarter: 2008Q1

REPORT INFORMATION
  Report Type: 
  Country: None (occurrence: None)
  Receive Date: 20080318
  Receipt Date: 20080304
  Transmission Date: 20080703
  Serious: Yes (Other)
  Sender: FDA-Public Use
  Company Number: US-ELI_LILLY_AND_COMPANY-US200803000681

PATIENT
  Age: 60 Year
  Sex: Male

DRUGS (4)
  1. CIALIS [Suspect]
     Dosage: 20 MG, UNK
     Dates: start: 20060710, end: 20080301
  2. NORVASC [Concomitant]
  3. FLOMAX [Concomitant]
  4. ADVICOR [Concomitant]

REACTIONS (3)
  - ANGIOPATHY [None]
  - PHOTOPSIA [None]
  - VISUAL FIELD DEFECT [None]
